FAERS Safety Report 7075206-6 (Version None)
Quarter: 2010Q4

REPORT INFORMATION
  Report Type: 
  Country: None (occurrence: None)
  Receive Date: 20101030
  Receipt Date: 20100429
  Transmission Date: 20110411
  Serious: No
  Sender: FDA-Public Use
  Company Number: US-WYE-H14808910

PATIENT
  Age: 65 Year
  Sex: Female
  Weight: 48.12 kg

DRUGS (4)
  1. ALAVERT [Suspect]
     Indication: HYPERSENSITIVITY
     Route: 048
     Dates: start: 20100420, end: 20100420
  2. ALAVERT [Suspect]
     Indication: SNEEZING
  3. ALAVERT [Suspect]
     Indication: COUGH
  4. TOPROL-XL [Concomitant]

REACTIONS (1)
  - DRUG EFFECT DECREASED [None]
